FAERS Safety Report 7357212-7 (Version None)
Quarter: 2011Q1

REPORT INFORMATION
  Report Type: 
  Country: None (occurrence: None)
  Receive Date: 20110311
  Receipt Date: 20110311
  Transmission Date: 20110831
  Serious: Yes (Other)
  Sender: FDA-Public Use
  Company Number: None

PATIENT
  Sex: Male
  Weight: 81.6475 kg

DRUGS (1)
  1. DONEPEZIL [Suspect]
     Indication: DEMENTIA ALZHEIMER'S TYPE
     Dosage: ONE TABLET DAILY PO
     Route: 048
     Dates: start: 20110304, end: 20110310

REACTIONS (3)
  - PRODUCT SUBSTITUTION ISSUE [None]
  - MOOD SWINGS [None]
  - AGITATION [None]
